FAERS Safety Report 17005596 (Version 1)
Quarter: 2019Q4

REPORT INFORMATION
  Report Type: Spontaneous
  Country: US (occurrence: US)
  Receive Date: 20191106
  Receipt Date: 20191106
  Transmission Date: 20200122
  Serious: Yes (Life-Threatening, Hospitalization)
  Sender: FDA-Public Use
  Company Number: None

PATIENT
  Age: 79 Year
  Sex: Male
  Weight: 81 kg

DRUGS (13)
  1. METFORMIN [Concomitant]
     Active Substance: METFORMIN HYDROCHLORIDE
  2. SIMVASTATIN. [Concomitant]
     Active Substance: SIMVASTATIN
  3. LUPRON [Concomitant]
     Active Substance: LEUPROLIDE ACETATE
  4. ACETAMINOPHEN. [Concomitant]
     Active Substance: ACETAMINOPHEN
  5. MELATONIN [Concomitant]
     Active Substance: MELATONIN
  6. TAMSULOSIN [Concomitant]
     Active Substance: TAMSULOSIN
  7. XARELTO [Concomitant]
     Active Substance: RIVAROXABAN
  8. AMLODIPINE [Concomitant]
     Active Substance: AMLODIPINE BESYLATE
  9. BENAZEPRIL [Concomitant]
     Active Substance: BENAZEPRIL HYDROCHLORIDE
  10. XARELTO [Suspect]
     Active Substance: RIVAROXABAN
     Indication: ANTICOAGULANT THERAPY
     Dosage: ?          QUANTITY:1 TABLET(S);?
     Route: 048
     Dates: start: 20140111, end: 20191103
  11. FINASTERIDE. [Concomitant]
     Active Substance: FINASTERIDE
  12. METOPROLOL. [Concomitant]
     Active Substance: METOPROLOL
  13. CALCIUM/VITAMIN D [Concomitant]
     Active Substance: CALCIUM\VITAMIN D

REACTIONS (5)
  - Dizziness [None]
  - Haemorrhage [None]
  - Flatulence [None]
  - Abdominal pain [None]
  - Spleen disorder [None]

NARRATIVE: CASE EVENT DATE: 20191103
